FAERS Safety Report 8061597-6 (Version None)
Quarter: 2012Q1

REPORT INFORMATION
  Report Type: 
  Country: None (occurrence: None)
  Receive Date: 20120122
  Receipt Date: 20100401
  Transmission Date: 20120608
  Serious: Yes (Death)
  Sender: FDA-Public Use
  Company Number: PHHY2010CA092862

PATIENT
  Sex: Female

DRUGS (1)
  1. AFINITOR [Suspect]
     Indication: RENAL CELL CARCINOMA
     Dosage: 10 MG (DAILY)
     Route: 048
     Dates: start: 20100212, end: 20100401

REACTIONS (2)
  - DEATH [None]
  - BLOOD GLUCOSE INCREASED [None]
